FAERS Safety Report 6027947-7 (Version None)
Quarter: 2009Q1

REPORT INFORMATION
  Report Type: 
  Country: None (occurrence: None)
  Receive Date: 20090105
  Receipt Date: 20081226
  Transmission Date: 20090719
  Serious: Yes (Hospitalization)
  Sender: FDA-Public Use
  Company Number: JP-AMGEN-US326421

PATIENT
  Age: 65 Year
  Sex: Female

DRUGS (2)
  1. ENBREL [Suspect]
     Indication: RHEUMATOID ARTHRITIS
     Dosage: NOT SPECIFIED
     Route: 058
     Dates: end: 20081220
  2. RHEUMATREX [Concomitant]
     Dosage: NOT SPECIFIED
     Route: 048

REACTIONS (1)
  - ORGANISING PNEUMONIA [None]
